FAERS Safety Report 4705644-5 (Version None)
Quarter: 2005Q2

REPORT INFORMATION
  Report Type: 
  Country: None (occurrence: None)
  Receive Date: 20050628
  Receipt Date: 20050613
  Transmission Date: 20051028
  Serious: Yes (Death)
  Sender: FDA-Public Use
  Company Number: GBS050517512

PATIENT
  Age: 52 Year
  Sex: Male
  Weight: 107 kg

DRUGS (5)
  1. CIALIS [Suspect]
     Indication: ERECTILE DYSFUNCTION
     Dosage: 20 MG
  2. ADALAT LA (NIFEDIPINE PA) [Concomitant]
  3. DOXAZOSIN [Concomitant]
  4. LISINOPRIL [Concomitant]
  5. WARFARIN [Concomitant]

REACTIONS (4)
  - ACUTE LEFT VENTRICULAR FAILURE [None]
  - ATHEROSCLEROSIS [None]
  - CARDIOMEGALY [None]
  - SUDDEN DEATH [None]
